FAERS Safety Report 6129879-2 (Version None)
Quarter: 2009Q1

REPORT INFORMATION
  Report Type: 
  Country: None (occurrence: None)
  Receive Date: 20090324
  Receipt Date: 20090312
  Transmission Date: 20090719
  Serious: Yes (Hospitalization)
  Sender: FDA-Public Use
  Company Number: GB-PFIZER INC-2009183434

PATIENT

DRUGS (4)
  1. DOXYCYCLINE HYCLATE [Suspect]
     Indication: MALARIA PROPHYLAXIS
     Route: 048
     Dates: start: 20090213, end: 20090217
  2. ARTESUNATE [Concomitant]
     Indication: MALARIA
     Dosage: 180 MG, 1X/DAY
     Route: 042
     Dates: start: 20090205, end: 20090212
  3. CYCLIZINE [Concomitant]
     Dosage: 50 MG, AS NEEDED
     Route: 048
     Dates: start: 20090205
  4. DOMPERIDONE [Concomitant]
     Dosage: 20 MG, AS NEEDED
     Route: 048
     Dates: start: 20090205

REACTIONS (1)
  - HAEMOLYSIS [None]
